FAERS Safety Report 24797377 (Version 1)
Quarter: 2025Q1

REPORT INFORMATION
  Report Type: Spontaneous
  Country: CH (occurrence: CH)
  Receive Date: 20250102
  Receipt Date: 20250102
  Transmission Date: 20250409
  Serious: Yes (Hospitalization, Other)
  Sender: AJANTA PHARMA USA INC
  Company Number: CH-AJANTA-2024AJA00190

PATIENT
  Age: 77 Year
  Sex: Male

DRUGS (2)
  1. OXCARBAZEPINE [Suspect]
     Active Substance: OXCARBAZEPINE
     Indication: Trigeminal neuralgia
  2. CANDESARTAN [Concomitant]
     Active Substance: CANDESARTAN
     Indication: Hypertension

REACTIONS (2)
  - Cholestatic liver injury [Recovered/Resolved]
  - Polyserositis [Recovered/Resolved]
